FAERS Safety Report 5411137-2 (Version None)
Quarter: 2007Q3

REPORT INFORMATION
  Report Type: 
  Country: None (occurrence: None)
  Receive Date: 20070808
  Receipt Date: 20070803
  Transmission Date: 20080115
  Serious: Yes (Death)
  Sender: FDA-Public Use
  Company Number: TIF2007A00134

PATIENT
  Age: 85 Year
  Sex: Female

DRUGS (7)
  1. LANSOPRAZOLE [Suspect]
     Indication: ABDOMINAL PAIN UPPER
     Dosage: 30 MG
  2. GABAPENTIN [Suspect]
     Indication: DIABETIC NEUROPATHY
     Dosage: 450 MG (150 MG,3 IN 1 D)
  3. HALOPERIDOL [Suspect]
     Indication: PSYCHOMOTOR HYPERACTIVITY
     Dosage: 10 MG
  4. INSULIN LISPRO(INSULIN LISPRO) [Concomitant]
  5. RAMIPRIL [Concomitant]
  6. ASPIRIN [Concomitant]
  7. DILTIAZEM [Concomitant]

REACTIONS (7)
  - BODY TEMPERATURE DECREASED [None]
  - GAIT DISTURBANCE [None]
  - PAIN [None]
  - RENAL FAILURE ACUTE [None]
  - RESPIRATORY FAILURE [None]
  - RHABDOMYOLYSIS [None]
  - SOMNOLENCE [None]
